FAERS Safety Report 20534036 (Version 1)
Quarter: 2022Q1

REPORT INFORMATION
  Report Type: Spontaneous
  Country: US (occurrence: US)
  Receive Date: 20220301
  Receipt Date: 20220301
  Transmission Date: 20220423
  Serious: No
  Sender: FDA-Public Use
  Company Number: US-PURDUE-USA-2021-0289972

PATIENT
  Age: 11 Year
  Sex: Male

DRUGS (1)
  1. ADHANSIA XR [Suspect]
     Active Substance: METHYLPHENIDATE HYDROCHLORIDE
     Indication: Product used for unknown indication
     Dosage: 45 MG, UNK
     Route: 048

REACTIONS (1)
  - Incorrect dose administered [Unknown]
